FAERS Safety Report 5554945-X (Version None)
Quarter: 2007Q4

REPORT INFORMATION
  Report Type: 
  Country: None (occurrence: None)
  Receive Date: 20071213
  Receipt Date: 20071205
  Transmission Date: 20080405
  Serious: Yes (Hospitalization)
  Sender: FDA-Public Use
  Company Number: KR-ASTRAZENECA-2007AP07759

PATIENT
  Age: 879 Month
  Sex: Female

DRUGS (4)
  1. IRESSA [Suspect]
     Indication: NON-SMALL CELL LUNG CANCER STAGE IV
     Route: 048
     Dates: start: 20070823, end: 20071009
  2. OXYCONTIN [Concomitant]
     Indication: ANALGESIC THERAPY
     Route: 048
     Dates: start: 20070726, end: 20071029
  3. MAGNESIUM OXIDE [Concomitant]
     Indication: CONSTIPATION
     Route: 048
     Dates: start: 20070726, end: 20071029
  4. MEGESTROL ACETATE [Concomitant]
     Indication: ANOREXIA
     Route: 048
     Dates: start: 20070726, end: 20071029

REACTIONS (1)
  - ABDOMINAL PAIN [None]
